FAERS Safety Report 18762753 (Version 2)
Quarter: 2021Q1

REPORT INFORMATION
  Report Type: Spontaneous
  Country: US (occurrence: US)
  Receive Date: 20210120
  Receipt Date: 20210212
  Transmission Date: 20210419
  Serious: No
  Sender: FDA-Public Use
  Company Number: US-BIOVITRUM-2021US0474

PATIENT
  Sex: Male

DRUGS (1)
  1. SYNAGIS [Suspect]
     Active Substance: PALIVIZUMAB
     Indication: ANOMALOUS PULMONARY VENOUS CONNECTION
     Route: 030
     Dates: start: 20201217

REACTIONS (4)
  - Crying [Unknown]
  - Irritability [Unknown]
  - Urinary tract infection [Unknown]
  - Pain [Unknown]
